FAERS Safety Report 9501614 (Version 1)
Quarter: 2013Q3

REPORT INFORMATION
  Report Type: Report from Study
  Country: US (occurrence: US)
  Receive Date: 20130905
  Receipt Date: 20130905
  Transmission Date: 20140515
  Serious: Yes (Hospitalization, Other)
  Sender: FDA-Public Use
  Company Number: US-ABBOTT-13P-163-1139064-00

PATIENT
  Age: 51 Year
  Sex: Female
  Weight: 72.64 kg

DRUGS (15)
  1. HUMIRA [Suspect]
     Indication: RHEUMATOID ARTHRITIS
     Dates: start: 2010, end: 201208
  2. HUMIRA [Suspect]
     Indication: SPONDYLITIS
     Dates: start: 201210, end: 201306
  3. HUMIRA [Suspect]
     Dates: start: 201307
  4. METHOTREXATE [Concomitant]
     Indication: PRODUCT USED FOR UNKNOWN INDICATION
  5. FOLIC ACID [Concomitant]
     Indication: PRODUCT USED FOR UNKNOWN INDICATION
  6. LYRICA [Concomitant]
     Indication: PRODUCT USED FOR UNKNOWN INDICATION
  7. OXYCONTIN [Concomitant]
     Indication: PRODUCT USED FOR UNKNOWN INDICATION
  8. DULERA [Concomitant]
     Indication: ASTHMA
  9. XOPENEX [Concomitant]
     Indication: ASTHMA
  10. NORFLEX [Concomitant]
     Indication: PRODUCT USED FOR UNKNOWN INDICATION
  11. FLEXERIL [Concomitant]
     Indication: PRODUCT USED FOR UNKNOWN INDICATION
  12. VITAMIN D [Concomitant]
     Indication: PRODUCT USED FOR UNKNOWN INDICATION
  13. MULTIVITAMIN [Concomitant]
     Indication: PRODUCT USED FOR UNKNOWN INDICATION
  14. AMBIEN [Concomitant]
     Indication: PRODUCT USED FOR UNKNOWN INDICATION
  15. CLONAZEPAM [Concomitant]
     Indication: PRODUCT USED FOR UNKNOWN INDICATION

REACTIONS (3)
  - Exostosis [Recovered/Resolved]
  - Spinal nerve stimulator implantation [Recovered/Resolved]
  - Drug effect decreased [Not Recovered/Not Resolved]
